FAERS Safety Report 18308416 (Version 2)
Quarter: 2020Q3

REPORT INFORMATION
  Report Type: Other
  Country: US (occurrence: US)
  Receive Date: 20200924
  Receipt Date: 20200928
  Transmission Date: 20201103
  Serious: Yes (Death, Other)
  Sender: FDA-Public Use
  Company Number: US-ROCHE-2683291

PATIENT
  Age: 41 Year
  Sex: Female

DRUGS (6)
  1. ACETAZOLAMIDE. [Concomitant]
     Active Substance: ACETAZOLAMIDE
     Indication: PRODUCT USED FOR UNKNOWN INDICATION
     Route: 065
  2. ACTILYSE [Suspect]
     Active Substance: ALTEPLASE
     Indication: CEREBRAL VENOUS SINUS THROMBOSIS
     Dosage: ALTEPLASE 10 MG IN 510 ML OF NORMAL SALINE WAS ADMINISTERED AS A CONTINUOUS INFUSION VIA INTRA?SINUS
     Route: 050
     Dates: start: 20181113
  3. ACTILYSE [Suspect]
     Active Substance: ALTEPLASE
     Route: 050
  4. DROSPIRENONE AND ETHINYL ESTRADIOL [Concomitant]
     Active Substance: DROSPIRENONE\ETHINYL ESTRADIOL
     Indication: PRODUCT USED FOR UNKNOWN INDICATION
     Route: 065
  5. MANNITOL. [Concomitant]
     Active Substance: MANNITOL
     Indication: PRODUCT USED FOR UNKNOWN INDICATION
     Route: 065
  6. SODIUM CHLORIDE. [Concomitant]
     Active Substance: SODIUM CHLORIDE
     Indication: PRODUCT USED FOR UNKNOWN INDICATION
     Dosage: 2% AND 3 %
     Route: 065

REACTIONS (4)
  - Death [Fatal]
  - Therapeutic product effect incomplete [Unknown]
  - Hydrocephalus [Unknown]
  - Intraventricular haemorrhage [Unknown]

NARRATIVE: CASE EVENT DATE: 20181118
